FAERS Safety Report 21084264 (Version 1)
Quarter: 2022Q3

REPORT INFORMATION
  Report Type: Spontaneous
  Country: US (occurrence: US)
  Receive Date: 20220714
  Receipt Date: 20220714
  Transmission Date: 20221026
  Serious: No
  Sender: FDA-Public Use
  Company Number: US-JAZZ-2022-US-015566

PATIENT
  Sex: Male

DRUGS (8)
  1. EPIDIOLEX [Suspect]
     Active Substance: CANNABIDIOL
     Indication: Lennox-Gastaut syndrome
     Dosage: 4.7 MILLILITER, BID
     Route: 048
  2. ALLEGRA ALLERGY [Concomitant]
     Active Substance: FEXOFENADINE HYDROCHLORIDE
  3. APTIOM [Concomitant]
     Active Substance: ESLICARBAZEPINE ACETATE
  4. FELBAMATE [Concomitant]
     Active Substance: FELBAMATE
  5. FYCOMPA [Concomitant]
     Active Substance: PERAMPANEL
  6. LAMOTRIGINE [Concomitant]
     Active Substance: LAMOTRIGINE
  7. ONFI [Concomitant]
     Active Substance: CLOBAZAM
  8. CLOTRIMAZOLE [Concomitant]
     Active Substance: CLOTRIMAZOLE

REACTIONS (1)
  - Product container issue [Unknown]
